FAERS Safety Report 4712579-0 (Version None)
Quarter: 2005Q3

REPORT INFORMATION
  Report Type: 
  Country: None (occurrence: None)
  Receive Date: 20050712
  Receipt Date: 20041208
  Transmission Date: 20060218
  Serious: Yes (Hospitalization)
  Sender: FDA-Public Use
  Company Number: DE-MERCK-0412DEU00080

PATIENT
  Age: 54 Year
  Sex: Female
  Weight: 74 kg

DRUGS (6)
  1. VIOXX [Suspect]
     Indication: OSTEOARTHRITIS
     Route: 048
     Dates: start: 20030106, end: 20030217
  2. VIOXX [Suspect]
     Route: 048
     Dates: start: 20030801, end: 20030801
  3. VIOXX [Suspect]
     Route: 048
     Dates: start: 20040923, end: 20041007
  4. VIOXX [Suspect]
     Indication: BACK PAIN
     Route: 048
     Dates: start: 20030106, end: 20030217
  5. VIOXX [Suspect]
     Route: 048
     Dates: start: 20030801, end: 20030801
  6. VIOXX [Suspect]
     Route: 048
     Dates: start: 20040923, end: 20041007

REACTIONS (2)
  - INTERVERTEBRAL DISC PROTRUSION [None]
  - MASTITIS [None]
